FAERS Safety Report 6240184-6 (Version None)
Quarter: 2009Q2

REPORT INFORMATION
  Report Type: 
  Country: None (occurrence: None)
  Receive Date: 20090619
  Receipt Date: 20090604
  Transmission Date: 20091009
  Serious: Yes (Death)
  Sender: FDA-Public Use
  Company Number: 2008AL011092

PATIENT
  Age: 57 Year
  Sex: Male

DRUGS (8)
  1. DIGOXIN [Suspect]
     Indication: ATRIAL FIBRILLATION
     Dosage: 0.125MG, DAILY, PO
     Route: 048
  2. LASIX [Concomitant]
  3. WARFARIN [Concomitant]
  4. ALLOPURINOL [Concomitant]
  5. AMLODIPINE [Concomitant]
  6. COLCHICINE [Concomitant]
  7. METFORMIN [Concomitant]
  8. COREG [Concomitant]

REACTIONS (19)
  - ACUTE MYOCARDIAL INFARCTION [None]
  - ANHEDONIA [None]
  - ANOXIC ENCEPHALOPATHY [None]
  - ANXIETY [None]
  - CARDIAC ARREST [None]
  - CEREBROVASCULAR ACCIDENT [None]
  - CREPITATIONS [None]
  - ECONOMIC PROBLEM [None]
  - FATIGUE [None]
  - HYPERHIDROSIS [None]
  - ILL-DEFINED DISORDER [None]
  - MULTIPLE INJURIES [None]
  - RALES [None]
  - RESPIRATORY FAILURE [None]
  - RHONCHI [None]
  - THERAPEUTIC AGENT TOXICITY [None]
  - UNRESPONSIVE TO STIMULI [None]
  - VENTRICULAR FIBRILLATION [None]
  - VOMITING [None]
